FAERS Safety Report 7522076-5 (Version None)
Quarter: 2011Q2

REPORT INFORMATION
  Report Type: 
  Country: None (occurrence: None)
  Receive Date: 20110603
  Receipt Date: 20110524
  Transmission Date: 20111010
  Serious: Yes (Other)
  Sender: FDA-Public Use
  Company Number: US-JNJFOC-20110511716

PATIENT
  Sex: Female
  Weight: 99.79 kg

DRUGS (2)
  1. FENTANYL-100 [Suspect]
     Indication: ABDOMINAL PAIN
     Route: 062
     Dates: start: 20101101, end: 20110101
  2. FENTANYL-100 [Suspect]
     Indication: PRODUCT USED FOR UNKNOWN INDICATION
     Route: 062
     Dates: start: 20090101

REACTIONS (5)
  - PRODUCT QUALITY ISSUE [None]
  - PYREXIA [None]
  - WRONG TECHNIQUE IN DRUG USAGE PROCESS [None]
  - STREPTOCOCCAL INFECTION [None]
  - NIGHT SWEATS [None]
